FAERS Safety Report 8271312-9 (Version None)
Quarter: 2012Q2

REPORT INFORMATION
  Report Type: 
  Country: None (occurrence: None)
  Receive Date: 20120410
  Receipt Date: 20111228
  Transmission Date: 20120825
  Serious: No
  Sender: FDA-Public Use
  Company Number: US-NOVEN-11US003846

PATIENT
  Sex: Female

DRUGS (2)
  1. FENTANYL CITRATE [Suspect]
     Indication: PAIN
     Dosage: 25 MCG/HR, UNK
     Route: 062
     Dates: start: 20111220, end: 20111201
  2. FENTANYL CITRATE [Concomitant]
     Dosage: UNK
     Route: 062
     Dates: start: 20111208

REACTIONS (4)
  - FEELING ABNORMAL [None]
  - DISORIENTATION [None]
  - INADEQUATE ANALGESIA [None]
  - ABNORMAL DREAMS [None]
